FAERS Safety Report 24394514 (Version 2)
Quarter: 2025Q2

REPORT INFORMATION
  Report Type: Spontaneous
  Country: AU (occurrence: AU)
  Receive Date: 20241004
  Receipt Date: 20250404
  Transmission Date: 20250717
  Serious: Yes (Hospitalization, Other)
  Sender: NOVO NORDISK
  Company Number: AU-NOVOPROD-1289414

PATIENT
  Age: 84 Year
  Sex: Male
  Weight: 74 kg

DRUGS (6)
  1. NOVORAPID [Suspect]
     Active Substance: INSULIN ASPART
     Indication: Type 1 diabetes mellitus
     Dosage: 4 IU, TID(4 UNITS 3 TIMES A DAY)
     Route: 058
  2. DOMPERIDONE [Concomitant]
     Active Substance: DOMPERIDONE
  3. ESOMEPRAZOLE [Concomitant]
     Active Substance: ESOMEPRAZOLE
  4. LIPIDIL [Concomitant]
     Active Substance: FENOFIBRATE
  5. LIPITOR [Concomitant]
     Active Substance: ATORVASTATIN CALCIUM
  6. APIXABAN [Concomitant]
     Active Substance: APIXABAN
     Indication: Prophylaxis

REACTIONS (3)
  - Dyspnoea [Recovering/Resolving]
  - Large intestine polyp [Unknown]
  - Drug ineffective [Unknown]
